FAERS Safety Report 7413425-7 (Version None)
Quarter: 2011Q2

REPORT INFORMATION
  Report Type: 
  Country: None (occurrence: None)
  Receive Date: 20110413
  Receipt Date: 20110406
  Transmission Date: 20111010
  Serious: Yes (Hospitalization, Other)
  Sender: FDA-Public Use
  Company Number: MX-ELI_LILLY_AND_COMPANY-MX201103006965

PATIENT
  Age: 50 Year
  Sex: Female
  Weight: 61 kg

DRUGS (2)
  1. BI EUGLUCON M [Concomitant]
  2. BYETTA [Suspect]
     Indication: DIABETES MELLITUS
     Dosage: 5 UG, BID
     Route: 058
     Dates: start: 20110301, end: 20110303

REACTIONS (5)
  - PLEURITIC PAIN [None]
  - INTENTIONAL DRUG MISUSE [None]
  - OVARIAN CYST [None]
  - NASOPHARYNGITIS [None]
  - PAIN IN EXTREMITY [None]
